FAERS Safety Report 9381327 (Version 3)
Quarter: 2013Q4

REPORT INFORMATION
  Report Type: Spontaneous
  Country: JP (occurrence: JP)
  Receive Date: 20130703
  Receipt Date: 20131008
  Transmission Date: 20140711
  Serious: Yes (Hospitalization, Other)
  Sender: FDA-Public Use
  Company Number: JP-ROCHE-1243665

PATIENT
  Age: 51 Year
  Sex: Female

DRUGS (3)
  1. CELLCEPT [Suspect]
     Indication: LIVER TRANSPLANT REJECTION
     Dosage: DOSAGE IS UNCERTAIN.
     Route: 048
  2. CICLOSPORIN [Suspect]
     Indication: LIVER TRANSPLANT REJECTION
     Dosage: DOSAGE IS UNCERTAIN
     Route: 065
  3. METHYLPREDNISOLONE [Suspect]
     Indication: LIVER TRANSPLANT REJECTION
     Dosage: DOSAGE IS UNCERTAIN
     Route: 065

REACTIONS (2)
  - Liver abscess [Recovering/Resolving]
  - Biliary anastomosis complication [Unknown]
